FAERS Safety Report 9367026 (Version 2)
Quarter: 2013Q3

REPORT INFORMATION
  Report Type: Spontaneous
  Country: CA (occurrence: CA)
  Receive Date: 20130625
  Receipt Date: 20130816
  Transmission Date: 20140515
  Serious: Yes (Death, Hospitalization, Other)
  Sender: FDA-Public Use
  Company Number: CA-BAXTER-2013BAX022381

PATIENT
  Age: 48 Year
  Sex: Female

DRUGS (3)
  1. EXTRANEAL [Suspect]
     Indication: RENAL FAILURE
     Route: 033
     Dates: start: 201004
  2. PHYSIONEAL 40 GLUCOSE 1.36% SOLUTION FOR PERITONEAL DIALYSIS [Suspect]
     Indication: RENAL FAILURE
     Route: 033
     Dates: start: 201004
  3. PHYSIONEAL 40 GLUCOSE 2.27% SOLUTION FOR PERITONEAL DIALYSIS [Suspect]
     Indication: RENAL FAILURE
     Route: 033
     Dates: start: 201004

REACTIONS (5)
  - Death [Fatal]
  - Pulmonary hypertension [Not Recovered/Not Resolved]
  - Cardiac disorder [Not Recovered/Not Resolved]
  - Hypertension [Not Recovered/Not Resolved]
  - Malaise [Not Recovered/Not Resolved]
